FAERS Safety Report 14476602 (Version 2)
Quarter: 2019Q3

REPORT INFORMATION
  Report Type: Report from Study
  Country: US (occurrence: US)
  Receive Date: 20180201
  Receipt Date: 20190722
  Transmission Date: 20191004
  Serious: No
  Sender: FDA-Public Use
  Company Number: US-SA-2017SA238545

PATIENT
  Age: 60 Year
  Sex: Female

DRUGS (6)
  1. PROLIA [Concomitant]
     Active Substance: DENOSUMAB
     Dosage: UNK
  2. CRESTOR [Concomitant]
     Active Substance: ROSUVASTATIN CALCIUM
     Dosage: 20 MG, TID
  3. ALIROCUMAB [Suspect]
     Active Substance: ALIROCUMAB
     Dosage: 300 MG, Q4W
  4. ALIROCUMAB [Suspect]
     Active Substance: ALIROCUMAB
     Indication: HYPERLIPIDAEMIA
     Dosage: 75 MG, QOW
     Dates: start: 20161228
  5. ALIROCUMAB [Suspect]
     Active Substance: ALIROCUMAB
     Dosage: 150 MG, QOW
     Route: 058
     Dates: start: 2017
  6. CRESTOR [Concomitant]
     Active Substance: ROSUVASTATIN CALCIUM
     Dosage: UNK UNK,UNK
     Route: 065

REACTIONS (15)
  - Nausea [Recovered/Resolved]
  - Muscle spasms [Recovered/Resolved]
  - Decreased appetite [Unknown]
  - Influenza like illness [Not Recovered/Not Resolved]
  - Feeling abnormal [Recovered/Resolved]
  - Headache [Not Recovered/Not Resolved]
  - Pain [Unknown]
  - Pain [Recovered/Resolved]
  - Vomiting [Unknown]
  - Low density lipoprotein abnormal [Recovered/Resolved]
  - Myalgia [Recovered/Resolved]
  - Blood cholesterol increased [Recovered/Resolved]
  - Pyrexia [Recovered/Resolved]
  - Dehydration [Not Recovered/Not Resolved]
  - Sluggishness [Not Recovered/Not Resolved]

NARRATIVE: CASE EVENT DATE: 2016
